FAERS Safety Report 24382914 (Version 1)
Quarter: 2024Q4

REPORT INFORMATION
  Report Type: Report from Study
  Country: CA (occurrence: CA)
  Receive Date: 20241001
  Receipt Date: 20241001
  Transmission Date: 20250115
  Serious: Yes (Death, Other)
  Sender: ALEXION PHARMACEUTICALS
  Company Number: CA-AstraZeneca-2024A211915

PATIENT

DRUGS (1)
  1. FASENRA [Suspect]
     Active Substance: BENRALIZUMAB
     Indication: Asthma
     Dosage: 30 MILLIGRAM, UNK, FREQUENCY: UNK

REACTIONS (1)
  - Myocardial infarction [Fatal]
